FAERS Safety Report 12982660 (Version 2)
Quarter: 2017Q1

REPORT INFORMATION
  Report Type: Spontaneous
  Country: US (occurrence: US)
  Receive Date: 20161129
  Receipt Date: 20170223
  Transmission Date: 20170428
  Serious: Yes (Other)
  Sender: FDA-Public Use
  Company Number: US-GLAXOSMITHKLINE-US2016GSK175174

PATIENT
  Age: 44 Year
  Sex: Female

DRUGS (3)
  1. TANZEUM [Suspect]
     Active Substance: ALBIGLUTIDE
     Indication: WEIGHT DECREASED
     Dosage: 50 MG, U
     Route: 042
  2. TANZEUM [Suspect]
     Active Substance: ALBIGLUTIDE
     Indication: TYPE 2 DIABETES MELLITUS
     Dosage: 50 MG, WE
     Route: 042
     Dates: start: 20160630
  3. TANZEUM [Suspect]
     Active Substance: ALBIGLUTIDE
     Indication: DIABETES MELLITUS

REACTIONS (4)
  - Device use error [Unknown]
  - Product preparation error [Unknown]
  - Pneumonia [Unknown]
  - Off label use [Unknown]

NARRATIVE: CASE EVENT DATE: 20160630
